FAERS Safety Report 5639342-0 (Version None)
Quarter: 2008Q1

REPORT INFORMATION
  Report Type: 
  Country: None (occurrence: None)
  Receive Date: 20080131
  Receipt Date: 20071203
  Transmission Date: 20080703
  Serious: Yes (Other)
  Sender: FDA-Public Use
  Company Number: 163-21880-07120137

PATIENT
  Age: 60 Year
  Sex: Female

DRUGS (2)
  1. REVLIMID [Suspect]
     Indication: MYELODYSPLASTIC SYNDROME
     Dosage: 10 MG, QD, ORAL ; 10 MG, QD, ORAL
     Route: 048
     Dates: start: 20070301, end: 20070401
  2. REVLIMID [Suspect]
     Indication: MYELODYSPLASTIC SYNDROME
     Dosage: 10 MG, QD, ORAL ; 10 MG, QD, ORAL
     Route: 048
     Dates: start: 20070401, end: 20070501

REACTIONS (3)
  - DRUG INEFFECTIVE [None]
  - NEUTROPENIA [None]
  - STAPHYLOCOCCAL INFECTION [None]
